FAERS Safety Report 18841686 (Version 4)
Quarter: 2021Q2

REPORT INFORMATION
  Report Type: Spontaneous
  Country: US (occurrence: US)
  Receive Date: 20210203
  Receipt Date: 20210427
  Transmission Date: 20210717
  Serious: Yes (Death, Other)
  Sender: FDA-Public Use
  Company Number: US-PFIZER INC-2021081413

PATIENT
  Age: 85 Year
  Sex: Male

DRUGS (1)
  1. RETACRIT [Suspect]
     Active Substance: EPOETIN ALFA-EPBX
     Indication: ANAEMIA
     Dosage: 10000 IU, WEEKLY (INJECT 10,000 U OF RETACRIT FREQUENCY: WEEKLY)

REACTIONS (2)
  - Haemoglobin decreased [Unknown]
  - Death [Fatal]
